FAERS Safety Report 8996062 (Version 1)
Quarter: 2013Q1

REPORT INFORMATION
  Report Type: Spontaneous
  Country: US (occurrence: US)
  Receive Date: 20130103
  Receipt Date: 20130103
  Transmission Date: 20140127
  Serious: No
  Sender: FDA-Public Use
  Company Number: US-ABBOTT-12P-163-0960835-00

PATIENT
  Age: 35 Year
  Sex: Male

DRUGS (1)
  1. SYNTHROID [Suspect]
     Indication: HYPOTHYROIDISM
     Dates: start: 201101

REACTIONS (3)
  - Glossodynia [Recovered/Resolved]
  - Pyrexia [Recovered/Resolved]
  - Product lot number issue [Unknown]
